FAERS Safety Report 12493419 (Version 1)
Quarter: 2016Q2

REPORT INFORMATION
  Report Type: Spontaneous
  Country: DE (occurrence: ES)
  Receive Date: 20160623
  Receipt Date: 20160623
  Transmission Date: 20160815
  Serious: Yes (Hospitalization)
  Sender: FDA-Public Use
  Company Number: DE-TEVA-668998GER

PATIENT
  Age: 74 Year
  Sex: Male
  Weight: 84 kg

DRUGS (5)
  1. BISOPROLOL 1,25 MG [Concomitant]
     Dosage: 1 DOSAGE FORMS DAILY;
  2. ASPIRIN. [Concomitant]
     Active Substance: ASPIRIN
     Dosage: 1 DOSAGE FORMS DAILY;
  3. AMLODIPINE [Concomitant]
     Active Substance: AMLODIPINE BESYLATE
     Dosage: .5 DOSAGE FORMS DAILY;
  4. SIMVASTATIN 20 MG [Suspect]
     Active Substance: SIMVASTATIN
     Indication: CORONARY ARTERY DISEASE
     Dosage: 20 MILLIGRAM DAILY;
     Route: 048
     Dates: start: 20101215, end: 20160610
  5. RAMIPRIL 10 MG [Concomitant]
     Dosage: 1 DOSAGE FORMS DAILY;

REACTIONS (1)
  - Tendon rupture [Unknown]

NARRATIVE: CASE EVENT DATE: 20160425
